FAERS Safety Report 6531688-7 (Version None)
Quarter: 2010Q1

REPORT INFORMATION
  Report Type: 
  Country: None (occurrence: None)
  Receive Date: 20100108
  Receipt Date: 20091228
  Transmission Date: 20100710
  Serious: Yes (Other)
  Sender: FDA-Public Use
  Company Number: US-BRISTOL-MYERS SQUIBB COMPANY-14914634

PATIENT
  Age: 51 Year
  Sex: Female

DRUGS (5)
  1. CEFEPIME [Suspect]
     Indication: PYREXIA
  2. TOBRAMYCIN SULFATE [Suspect]
     Indication: PYREXIA
  3. TRETINOIN [Suspect]
     Indication: ACUTE PROMYELOCYTIC LEUKAEMIA
  4. DAUNORUBICIN HCL [Suspect]
  5. CYTARABINE [Suspect]

REACTIONS (5)
  - ARTHRITIS [None]
  - MONONEURITIS [None]
  - MYOSITIS [None]
  - NEUROPATHY PERIPHERAL [None]
  - PERONEAL NERVE PALSY [None]
